FAERS Safety Report 23457503 (Version 1)
Quarter: 2024Q1

REPORT INFORMATION
  Report Type: Spontaneous
  Country: CZ (occurrence: CZ)
  Receive Date: 20240130
  Receipt Date: 20240130
  Transmission Date: 20240410
  Serious: Yes (Life-Threatening, Hospitalization, Other)
  Sender: FDA-Public Use
  Company Number: None

PATIENT
  Age: 85 Year
  Sex: Male

DRUGS (9)
  1. PAXLOVID [Suspect]
     Active Substance: NIRMATRELVIR\RITONAVIR
     Indication: COVID-19 treatment
     Dosage: UNK
     Dates: start: 20231219, end: 20231224
  2. NOVALGIN (METAMIZOLE SODIUM) [Concomitant]
     Active Substance: METAMIZOLE SODIUM
     Dosage: DURING PAIN, MAXIMUM 3 TABLETS PER DAY
     Route: 048
  3. ATORVASTATIN [Concomitant]
     Active Substance: ATORVASTATIN
     Indication: Hypercholesterolaemia
     Dosage: 0-0-1
     Route: 048
  4. MELPERONE HYDROCHLORIDE [Concomitant]
     Active Substance: MELPERONE HYDROCHLORIDE
     Dosage: 0-0-1, DURING SLEEPLESSNESS
     Route: 048
  5. DIOSMIN\HESPERIDIN [Concomitant]
     Active Substance: DIOSMIN\HESPERIDIN
     Indication: Peripheral venous disease
     Dosage: 2-0-0
     Route: 048
  6. ASPIRIN [Concomitant]
     Active Substance: ASPIRIN
     Dosage: 1-0-0
     Route: 048
  7. TELMISARTAN [Concomitant]
     Active Substance: TELMISARTAN
     Indication: Hypertension
     Dosage: 1-0-0, WHEN BLOOD PRESSURE ABOVE 130/90
     Route: 048
  8. FINASTERIDE [Concomitant]
     Active Substance: FINASTERIDE
     Dosage: 1-0-0
     Route: 048
  9. TAMSULOSIN [Concomitant]
     Active Substance: TAMSULOSIN
     Dosage: 1-0-0
     Route: 048

REACTIONS (6)
  - Loss of consciousness [Unknown]
  - Circulatory collapse [Unknown]
  - Movement disorder [Unknown]
  - Head injury [Unknown]
  - Concussion [Unknown]
  - Decreased appetite [Unknown]

NARRATIVE: CASE EVENT DATE: 20231221
